FAERS Safety Report 18248508 (Version 2)
Quarter: 2021Q2

REPORT INFORMATION
  Report Type: Spontaneous
  Country: CA (occurrence: CA)
  Receive Date: 20200909
  Receipt Date: 20210506
  Transmission Date: 20210717
  Serious: Yes (Other)
  Sender: FDA-Public Use
  Company Number: CA-BAYER-2020-188314

PATIENT
  Age: 21 Year
  Sex: Male
  Weight: 99.77 kg

DRUGS (2)
  1. GADOVIST [Suspect]
     Active Substance: GADOBUTROL
     Indication: MAGNETIC RESONANCE IMAGING
  2. GADOVIST [Suspect]
     Active Substance: GADOBUTROL
     Indication: NEOPLASM
     Dosage: 10 ML, ONCE
     Route: 042
     Dates: start: 20200901, end: 20200901

REACTIONS (6)
  - Dizziness [Unknown]
  - Hyperhidrosis [Unknown]
  - Seizure [Unknown]
  - Nausea [Unknown]
  - Dysphagia [Unknown]
  - Cough [Unknown]

NARRATIVE: CASE EVENT DATE: 20200901
